FAERS Safety Report 10064345 (Version 1)
Quarter: 2014Q2

REPORT INFORMATION
  Report Type: Spontaneous
  Country: US (occurrence: US)
  Receive Date: 20140408
  Receipt Date: 20140408
  Transmission Date: 20141212
  Serious: Yes (Other)
  Sender: FDA-Public Use
  Company Number: GXBR2014US001011

PATIENT
  Sex: Male

DRUGS (3)
  1. BUPROPION HCI TABLETS EXTENDED-RELEASE [Suspect]
     Dosage: 150 MG, Q12H
  2. PROPRANOLOL HCL TABLETS USP [Suspect]
     Dosage: UNK DF, UNK
  3. FLUPHENAZINE [Suspect]
     Dosage: 5 MG, UNK

REACTIONS (4)
  - Cerebrovascular accident [Not Recovered/Not Resolved]
  - Angina pectoris [Not Recovered/Not Resolved]
  - Dyspnoea [Not Recovered/Not Resolved]
  - Gastric disorder [Not Recovered/Not Resolved]
